FAERS Safety Report 9503773 (Version 2)
Quarter: 2013Q3

REPORT INFORMATION
  Report Type: Spontaneous
  Country: US (occurrence: US)
  Receive Date: 20130906
  Receipt Date: 20130906
  Transmission Date: 20140515
  Serious: Yes (Other)
  Sender: FDA-Public Use
  Company Number: US-RANBAXY-2010US-38380

PATIENT
  Sex: Male

DRUGS (2)
  1. ALFUZOSIN [Suspect]
     Indication: MICTURITION URGENCY
     Dosage: 10 MG, DAILY
     Route: 065
  2. ATORVASTATIN [Suspect]
     Indication: HYPERLIPIDAEMIA
     Dosage: 10 MG, DAILY
     Route: 065

REACTIONS (1)
  - Pseudolymphoma [Recovered/Resolved]
